FAERS Safety Report 6657764-6 (Version None)
Quarter: 2010Q1

REPORT INFORMATION
  Report Type: 
  Country: None (occurrence: None)
  Receive Date: 20100330
  Receipt Date: 20100308
  Transmission Date: 20100710
  Serious: No
  Sender: FDA-Public Use
  Company Number: US-TYCO HEALTHCARE/MALLINCKRODT-T201000814

PATIENT
  Sex: Male

DRUGS (5)
  1. METHADOSE [Suspect]
     Dosage: UNK
  2. OXYCONTIN [Suspect]
     Dosage: UNK
  3. SOMA [Suspect]
     Dosage: UNK
  4. MS CONTIN [Suspect]
     Dosage: UNK
  5. AMBIEN [Suspect]
     Dosage: UNK

REACTIONS (1)
  - SOMNOLENCE [None]
